FAERS Safety Report 9424647 (Version 1)
Quarter: 2013Q3

REPORT INFORMATION
  Report Type: Spontaneous
  Country: US (occurrence: None)
  Receive Date: 20130726
  Receipt Date: 20130726
  Transmission Date: 20140515
  Serious: No
  Sender: FDA-Public Use
  Company Number: None

PATIENT
  Age: 51 Year
  Sex: Female

DRUGS (2)
  1. DOCETAXEL [Suspect]
     Route: 042
     Dates: start: 20130618, end: 20130618
  2. DOCETAXEL [Suspect]

REACTIONS (3)
  - Infusion related reaction [None]
  - Dyspnoea [None]
  - Anxiety [None]
